FAERS Safety Report 6651944-1 (Version None)
Quarter: 2010Q1

REPORT INFORMATION
  Report Type: 
  Country: None (occurrence: None)
  Receive Date: 20100325
  Receipt Date: 20100322
  Transmission Date: 20100710
  Serious: Yes (Hospitalization)
  Sender: FDA-Public Use
  Company Number: DE-WYE-G05800810

PATIENT
  Sex: Male
  Weight: 3.81 kg

DRUGS (2)
  1. TREVILOR RETARD [Suspect]
     Indication: DEPRESSION
     Route: 064
     Dates: start: 20071101, end: 20090101
  2. TREVILOR RETARD [Suspect]
     Dosage: REDUCED TO 75 MG PER DAY
     Route: 064
     Dates: start: 20090101, end: 20091001

REACTIONS (3)
  - CAESAREAN SECTION [None]
  - CONGENITAL INGUINAL HERNIA [None]
  - MATERNAL DRUGS AFFECTING FOETUS [None]
